FAERS Safety Report 6070711-3 (Version None)
Quarter: 2009Q1

REPORT INFORMATION
  Report Type: 
  Country: None (occurrence: None)
  Receive Date: 20090209
  Receipt Date: 20090127
  Transmission Date: 20090719
  Serious: Yes (Other)
  Sender: FDA-Public Use
  Company Number: JP-ROCHE-610286

PATIENT
  Age: 12 Year
  Sex: Male

DRUGS (3)
  1. TAMIFLU [Suspect]
     Indication: INFLUENZA
     Route: 048
     Dates: start: 20081230, end: 20081230
  2. TAMIFLU [Suspect]
     Route: 048
     Dates: start: 20081231, end: 20090101
  3. TAMIFLU [Suspect]
     Route: 048
     Dates: start: 20090102, end: 20090102

REACTIONS (1)
  - ABNORMAL BEHAVIOUR [None]
